FAERS Safety Report 6498820-5 (Version None)
Quarter: 2009Q4

REPORT INFORMATION
  Report Type: 
  Country: None (occurrence: None)
  Receive Date: 20091215
  Receipt Date: 20091203
  Transmission Date: 20100525
  Serious: Yes (Disabling)
  Sender: FDA-Public Use
  Company Number: US-PFIZER INC-2006056460

PATIENT
  Sex: Male
  Weight: 94.4 kg

DRUGS (10)
  1. SUNITINIB MALATE [Suspect]
     Indication: PROSTATE CANCER
     Dosage: 37.5 MG, 1X/DAY, FOR 14 DAYS
     Route: 048
     Dates: start: 20060201, end: 20060418
  2. DOCETAXEL [Suspect]
     Indication: PROSTATE CANCER
     Dosage: 60 MG/M2, EVERY 3 WEEKS
     Route: 042
     Dates: start: 20060315, end: 20060405
  3. PREDNISONE [Suspect]
     Indication: PROSTATE CANCER
     Dosage: 10 MG, UNK
     Route: 048
     Dates: start: 20060315, end: 20060425
  4. ATENOLOL [Concomitant]
     Dosage: UNK
     Route: 048
     Dates: start: 19790101
  5. LISINOPRIL [Concomitant]
     Dosage: UNK
     Route: 048
     Dates: start: 19790101
  6. ESOMEPRAZOLE [Concomitant]
     Dosage: UNK
     Route: 048
     Dates: start: 20030101
  7. ONDANSETRON [Concomitant]
     Dosage: UNK
     Route: 048
     Dates: start: 20060210
  8. ACETYLSALICYLIC ACID [Concomitant]
     Dosage: UNK
     Route: 048
     Dates: start: 20050101
  9. ACTONEL [Concomitant]
     Dosage: UNK
     Route: 048
     Dates: start: 20050101
  10. DECADRON [Concomitant]
     Dosage: UNK
     Route: 048
     Dates: start: 20060314, end: 20060404

REACTIONS (1)
  - OPHTHALMOPLEGIA [None]
